FAERS Safety Report 8497329-7 (Version None)
Quarter: 2012Q3

REPORT INFORMATION
  Report Type: 
  Country: None (occurrence: None)
  Receive Date: 20120709
  Receipt Date: 20120608
  Transmission Date: 20120928
  Serious: No
  Sender: FDA-Public Use
  Company Number: US-AMGEN-USASP2012035929

PATIENT
  Sex: Female

DRUGS (2)
  1. ENBREL [Suspect]
     Indication: RHEUMATOID ARTHRITIS
     Dosage: 50 MG, 2 TIMES/WK
     Dates: start: 20100714, end: 20120501
  2. HUMIRA [Suspect]
     Dosage: UNK
     Dates: start: 20120101

REACTIONS (2)
  - RHEUMATOID ARTHRITIS [None]
  - INJECTION SITE REACTION [None]
